FAERS Safety Report 4803683-7 (Version None)
Quarter: 2005Q4

REPORT INFORMATION
  Report Type: 
  Country: None (occurrence: None)
  Receive Date: 20051017
  Receipt Date: 20050705
  Transmission Date: 20060501
  Serious: Yes (Other)
  Sender: FDA-Public Use
  Company Number: HQWYE100811JUL05

PATIENT
  Age: 13 Year
  Sex: Female
  Weight: 53.12 kg

DRUGS (2)
  1. ALAVERT [Suspect]
     Indication: RHINORRHOEA
     Dosage: 1 TAB DAILY AS NEEDED, ORAL
     Route: 048
     Dates: end: 20050705
  2. ALAVERT [Suspect]
     Indication: SNEEZING
     Dosage: 1 TAB DAILY AS NEEDED, ORAL
     Route: 048
     Dates: end: 20050705

REACTIONS (1)
  - RETCHING [None]
